FAERS Safety Report 6246334-X (Version None)
Quarter: 2009Q2

REPORT INFORMATION
  Report Type: 
  Country: None (occurrence: None)
  Receive Date: 20090624
  Receipt Date: 20090624
  Transmission Date: 20091009
  Serious: Yes (Hospitalization)
  Sender: FDA-Public Use
  Company Number: None

PATIENT
  Sex: Female
  Weight: 37.92 kg

DRUGS (10)
  1. CETUXIMAB 250 MG/M2 BRISTOL MYERS SQUIBB [Suspect]
     Indication: CERVIX CARCINOMA
     Dosage: 345 WEEKLY IV
     Route: 042
     Dates: start: 20060901, end: 20070104
  2. OXYCONTIN [Concomitant]
  3. OXYCODONE [Concomitant]
  4. COMPAZINE [Concomitant]
  5. IMODIUM [Concomitant]
  6. ZOFRAN [Concomitant]
  7. ARANESP [Concomitant]
  8. POTASSIUM CHLORIDE [Concomitant]
  9. PEPCID [Concomitant]
  10. BACITRACIN TRIPLE ANTIBIOTIC OINTMENT [Concomitant]

REACTIONS (2)
  - GENITOURINARY TRACT INFECTION [None]
  - KIDNEY INFECTION [None]
